FAERS Safety Report 7291243-0 (Version None)
Quarter: 2011Q1

REPORT INFORMATION
  Report Type: 
  Country: None (occurrence: None)
  Receive Date: 20110214
  Receipt Date: 20110203
  Transmission Date: 20110831
  Serious: Yes (Other)
  Sender: FDA-Public Use
  Company Number: DE-JNJFOC-20110202201

PATIENT
  Sex: Female

DRUGS (3)
  1. REMICADE [Suspect]
     Indication: COLITIS ULCERATIVE
     Dosage: 17TH INFUSION
     Route: 042
  2. VICTOZA [Concomitant]
     Indication: DIABETES MELLITUS
  3. REMICADE [Suspect]
     Route: 042

REACTIONS (5)
  - INFUSION RELATED REACTION [None]
  - VOMITING [None]
  - HYPERSENSITIVITY [None]
  - TREMOR [None]
  - MALAISE [None]
